FAERS Safety Report 5092478-8 (Version None)
Quarter: 2006Q3

REPORT INFORMATION
  Report Type: 
  Country: None (occurrence: None)
  Receive Date: 20060823
  Receipt Date: 20060815
  Transmission Date: 20061208
  Serious: Yes (Other)
  Sender: FDA-Public Use
  Company Number: THYM-11010

PATIENT
  Age: 18 Year
  Sex: Female
  Weight: 45 kg

DRUGS (12)
  1. THYMOGLOBULIN [Suspect]
     Indication: RENAL TRANSPLANT
     Dosage: 75 MG QD IV
     Route: 042
     Dates: start: 20060714, end: 20060715
  2. THYMOGLOBULIN [Suspect]
     Indication: RENAL TRANSPLANT
     Dosage: 75 MG QD IV
     Route: 042
     Dates: start: 20060718, end: 20060718
  3. CELLCEPT [Concomitant]
  4. TACROLIMUS [Concomitant]
  5. PREDNISONE TAB [Concomitant]
  6. SEPTRA SS [Concomitant]
  7. FLUCONAZOLE [Concomitant]
  8. VALCYTE [Concomitant]
  9. DOCUSATE [Concomitant]
  10. LORTAB [Concomitant]
  11. RANITIDINE [Concomitant]
  12. PREDNISONE TAB [Concomitant]

REACTIONS (1)
  - THROMBOTIC MICROANGIOPATHY [None]
